FAERS Safety Report 4924920-4 (Version None)
Quarter: 2006Q1

REPORT INFORMATION
  Report Type: 
  Country: None (occurrence: None)
  Receive Date: 20060222
  Receipt Date: 20060123
  Transmission Date: 20060701
  Serious: Yes (Hospitalization, Other)
  Sender: FDA-Public Use
  Company Number: 2006BH001867

PATIENT
  Age: 73 Year
  Sex: Male
  Weight: 78.0187 kg

DRUGS (7)
  1. HEPARIN SODIUM [Suspect]
     Indication: ACUTE CORONARY SYNDROME
  2. ANGIOMAX [Suspect]
     Indication: ACUTE CORONARY SYNDROME
     Dosage: SEE IMAGE
     Route: 042
     Dates: start: 20050920, end: 20050920
  3. ANGIOMAX [Suspect]
     Indication: ACUTE CORONARY SYNDROME
     Dosage: SEE IMAGE
     Route: 042
     Dates: start: 20050920, end: 20050927
  4. ASPIRIN [Suspect]
     Dosage: 325 MG
  5. REFLUDAN [Suspect]
  6. COUMADIN [Suspect]
  7. AMIODARONE [Concomitant]

REACTIONS (4)
  - ATRIAL FIBRILLATION [None]
  - CARDIAC TAMPONADE [None]
  - HEPARIN-INDUCED THROMBOCYTOPENIA [None]
  - PERICARDIAL EFFUSION [None]
